FAERS Safety Report 8132813-7 (Version None)
Quarter: 2012Q1

REPORT INFORMATION
  Report Type: 
  Country: None (occurrence: None)
  Receive Date: 20120207
  Receipt Date: 20120127
  Transmission Date: 20120608
  Serious: Yes (Life-Threatening, Hospitalization)
  Sender: FDA-Public Use
  Company Number: 09-AUR-09926

PATIENT
  Age: 76 Year
  Sex: Female

DRUGS (6)
  1. RAMIPRIL [Suspect]
     Indication: PRODUCT USED FOR UNKNOWN INDICATION
     Dosage: 1.25 MG (1.25 MG, 1 IN 1 D), ORAL
     Route: 048
     Dates: end: 20090403
  2. SIMVASTATIN [Suspect]
     Indication: HYPERCHOLESTEROLAEMIA
     Dosage: 80 MG (80 MG, 1 IN 1 D), ORAL
     Route: 048
     Dates: start: 20090101, end: 20090403
  3. ASPIRIN [Concomitant]
  4. ATORVASTATIN [Concomitant]
  5. CLOPIDOGREL [Concomitant]
  6. TRIMETHOPRIM [Concomitant]

REACTIONS (2)
  - DYSPNOEA [None]
  - LARYNGEAL OEDEMA [None]
